FAERS Safety Report 15375027 (Version 2)
Quarter: 2022Q1

REPORT INFORMATION
  Report Type: Other
  Country: DE (occurrence: None)
  Receive Date: 20180912
  Receipt Date: 20220302
  Transmission Date: 20220424
  Serious: Yes (Other)
  Sender: FDA-Public Use
  Company Number: DE-ROCHE-2183940

PATIENT

DRUGS (6)
  1. ALTEPLASE [Suspect]
     Active Substance: ALTEPLASE
     Indication: Ischaemic stroke
     Dosage: 10 PERCENT OF 0.9 MG/KG
     Route: 040
  2. ALTEPLASE [Suspect]
     Active Substance: ALTEPLASE
     Dosage: 90 PERCENT OF 0.9 MG/KG BY INFUSION DURING A 60-MINUTE PERIOD
     Route: 042
  3. ALTEPLASE [Suspect]
     Active Substance: ALTEPLASE
     Indication: Ischaemic stroke
     Route: 040
  4. ALTEPLASE [Suspect]
     Active Substance: ALTEPLASE
     Route: 042
  5. ALTEPLASE [Suspect]
     Active Substance: ALTEPLASE
     Indication: Ischaemic stroke
     Route: 040
  6. ALTEPLASE [Suspect]
     Active Substance: ALTEPLASE
     Route: 042

REACTIONS (31)
  - Cerebral haemorrhage [Unknown]
  - Cerebral infarction [Unknown]
  - Oedema [Unknown]
  - Ischaemic stroke [Unknown]
  - Haemorrhage [Unknown]
  - Cardiac disorder [Unknown]
  - Gastrointestinal disorder [Unknown]
  - Infection [Unknown]
  - Infestation [Unknown]
  - Injury [Unknown]
  - Poisoning [Unknown]
  - Musculoskeletal disorder [Unknown]
  - Connective tissue disorder [Unknown]
  - Nervous system disorder [Unknown]
  - Renal disorder [Unknown]
  - Urinary tract disorder [Unknown]
  - Respiratory disorder [Unknown]
  - Ill-defined disorder [Unknown]
  - Mediastinal disorder [Unknown]
  - Angiopathy [Unknown]
  - Haemorrhage intracranial [Unknown]
  - Haemorrhagic transformation stroke [Unknown]
  - Neurological decompensation [Unknown]
  - Coma [Unknown]
  - Depressed level of consciousness [Unknown]
  - Stroke in evolution [Unknown]
  - Delirium [Unknown]
  - Paralysis [Unknown]
  - Haemoptysis [Unknown]
  - Anaphylactic shock [Unknown]
  - Muscle haemorrhage [Unknown]
